FAERS Safety Report 8013775-X (Version None)
Quarter: 2011Q4

REPORT INFORMATION
  Report Type: 
  Country: None (occurrence: None)
  Receive Date: 20111229
  Receipt Date: 20111227
  Transmission Date: 20120403
  Serious: Yes (Life-Threatening)
  Sender: FDA-Public Use
  Company Number: DE-PFIZER INC-2011288170

PATIENT
  Age: 61 Year
  Sex: Male

DRUGS (1)
  1. PETINUTIN [Suspect]
     Indication: EPILEPSY
     Dosage: 300 MG + 150 MG
     Route: 048
     Dates: start: 19590101

REACTIONS (8)
  - OESOPHAGEAL PAIN [None]
  - GASTROOESOPHAGEAL REFLUX DISEASE [None]
  - DYSPNOEA [None]
  - URTICARIA [None]
  - ANGIOEDEMA [None]
  - SPEECH DISORDER [None]
  - ENZYME ABNORMALITY [None]
  - DYSGEUSIA [None]
